FAERS Safety Report 6444783-8 (Version None)
Quarter: 2009Q4

REPORT INFORMATION
  Report Type: 
  Country: None (occurrence: None)
  Receive Date: 20091118
  Receipt Date: 20091112
  Transmission Date: 20100525
  Serious: Yes (Other)
  Sender: FDA-Public Use
  Company Number: B0604948A

PATIENT
  Age: 60 Year
  Sex: Male

DRUGS (4)
  1. LEUKERAN [Suspect]
     Route: 048
     Dates: start: 20090601, end: 20090629
  2. LEUKERAN [Suspect]
     Route: 048
     Dates: start: 20090930, end: 20091016
  3. AMLODIPINE [Concomitant]
     Dates: start: 20090601, end: 20090801
  4. LOSARTAN POTASSIUM AND HYDROCHLOROTHIAZIDE [Concomitant]
     Dates: start: 20090801

REACTIONS (3)
  - DRUG INEFFECTIVE [None]
  - PRURITUS [None]
  - RASH [None]
